FAERS Safety Report 24566213 (Version 1)
Quarter: 2024Q4

REPORT INFORMATION
  Report Type: Spontaneous
  Country: KZ (occurrence: KZ)
  Receive Date: 20241030
  Receipt Date: 20241030
  Transmission Date: 20250115
  Serious: Yes (Hospitalization, Other)
  Sender: NOVARTIS
  Company Number: KZ-002147023-NVSC2024KZ204160

PATIENT
  Age: 40 Year
  Sex: Female

DRUGS (1)
  1. PAZOPANIB [Suspect]
     Active Substance: PAZOPANIB
     Indication: Cervix carcinoma
     Dosage: 400 MG, BID (800 MG PER DAY)
     Route: 048
     Dates: end: 202410

REACTIONS (5)
  - Diarrhoea [Not Recovered/Not Resolved]
  - Seizure [Unknown]
  - Hyperbilirubinaemia [Unknown]
  - Body temperature increased [Unknown]
  - Anal haemorrhage [Unknown]

NARRATIVE: CASE EVENT DATE: 20241001
